FAERS Safety Report 9698963 (Version 3)
Quarter: 2013Q4

REPORT INFORMATION
  Report Type: Spontaneous
  Country: US (occurrence: None)
  Receive Date: 20131118
  Receipt Date: 20131212
  Transmission Date: 20140711
  Serious: Yes (Hospitalization)
  Sender: FDA-Public Use
  Company Number: AUR-APL-2013-08972

PATIENT
  Age: 59 Year
  Sex: Male

DRUGS (27)
  1. ESCITALOPRAM [Suspect]
     Indication: DEPRESSION
     Dates: start: 20130705, end: 20130710
  2. IPRATROPIUM BROMIDE [Suspect]
     Indication: PRODUCT USED FOR UNKNOWN INDICATION
     Dosage: NEBULIZER
     Route: 055
     Dates: start: 20130626, end: 20130712
  3. CEPHALEXIN (CEFALEXIN) [Concomitant]
  4. METOPROLOL (METOPROLOL) [Concomitant]
  5. AMIODARONE (AMIODARONE) [Concomitant]
  6. RANITIDINE (RANITIDINE) [Concomitant]
  7. FUROSEMIDE (FUROSEMIDE) [Concomitant]
  8. DIGOXIN (DIGOXIN) [Concomitant]
  9. LISINOPRIL (LISINOPRIL) [Concomitant]
  10. NYSTOP (NYSTATIN) [Concomitant]
  11. NYSTATIN (NYSTATIN) [Concomitant]
  12. COMBIVENT (COMBIVENT) [Concomitant]
  13. INSULIN LISPRO (INSULIN LISPRO) [Concomitant]
  14. WARFARIN (WARFARIN) [Concomitant]
  15. ACETAMINOPHEN (PARACETAMOL) [Concomitant]
  16. MILK OF MAGNESIA (MAGNESIUM HYDROXIDE) [Concomitant]
  17. BISACODYL (BISACODYL) [Concomitant]
  18. OMEPRAZOLE (OMEPRAZOLE) [Concomitant]
  19. MUCINEX [Concomitant]
  20. DIPHENHYDRAMINE (DIPHENHYDRAMINE) [Concomitant]
  21. DOCUSATE W/SENNA (DOCUSATE W/SENNA) [Concomitant]
  22. TRIAMCINOLONE (TRIAMCINOLONE) [Concomitant]
  23. FLUTICASONE PROPIONATE (FLUTICASONE PROPIONATE) [Concomitant]
  24. ONDANSETRON (ONDANSETRON) [Concomitant]
  25. ALBUTEROL (SALBUTAMOL) [Concomitant]
  26. OMEPRAZOLE (OMEPRAZOLE) [Concomitant]
  27. DIMETHICONE (DIMETICONE) [Concomitant]

REACTIONS (5)
  - Urinary retention [None]
  - Discomfort [None]
  - International normalised ratio fluctuation [None]
  - Dysuria [None]
  - Drug interaction [None]
